FAERS Safety Report 4274284-7 (Version None)
Quarter: 2004Q1

REPORT INFORMATION
  Report Type: 
  Country: None (occurrence: None)
  Receive Date: 20040115
  Receipt Date: 20030609
  Transmission Date: 20041129
  Serious: Yes (Hospitalization)
  Sender: FDA-Public Use
  Company Number: 2003IC000413

PATIENT
  Sex: Male

DRUGS (1)
  1. EFUDEX [Suspect]
     Indication: ACTINIC KERATOSIS
     Dosage: TOPICAL
     Route: 061

REACTIONS (5)
  - DISEASE RECURRENCE [None]
  - OSTEOMYELITIS [None]
  - PSEUDOMONAS INFECTION [None]
  - RED BLOOD CELL SEDIMENTATION RATE ABNORMAL [None]
  - WHITE BLOOD CELL COUNT DECREASED [None]
